FAERS Safety Report 14325139 (Version 7)
Quarter: 2018Q3

REPORT INFORMATION
  Report Type: Report from Study
  Country: US (occurrence: US)
  Receive Date: 20171226
  Receipt Date: 20180905
  Transmission Date: 20181010
  Serious: Yes (Other)
  Sender: FDA-Public Use
  Company Number: US-CLOVIS ONCOLOGY-CLO-2017-001450

PATIENT
  Age: 67 Year
  Sex: Female

DRUGS (2)
  1. RUBRACA [Suspect]
     Active Substance: RUCAPARIB CAMSYLATE
     Dosage: 400 MG, BID
     Route: 048
     Dates: start: 20171115, end: 201808
  2. RUBRACA [Suspect]
     Active Substance: RUCAPARIB CAMSYLATE
     Indication: OVARIAN CANCER
     Dosage: 400 MG, BID
     Route: 048
     Dates: start: 20171110

REACTIONS (12)
  - Cataract [Unknown]
  - Drug ineffective [Unknown]
  - Prostatic specific antigen increased [Unknown]
  - Computerised tomogram thorax abnormal [Unknown]
  - Tumour marker increased [Unknown]
  - Fatigue [Not Recovered/Not Resolved]
  - Abdominal discomfort [Unknown]
  - Dyspnoea [Unknown]
  - Bronchitis [Unknown]
  - Underdose [Unknown]
  - Stomach scan abnormal [Unknown]
  - Drug dose omission [Unknown]

NARRATIVE: CASE EVENT DATE: 2017
